FAERS Safety Report 7403024-5 (Version None)
Quarter: 2011Q2

REPORT INFORMATION
  Report Type: 
  Country: None (occurrence: None)
  Receive Date: 20110408
  Receipt Date: 20110124
  Transmission Date: 20111010
  Serious: No
  Sender: FDA-Public Use
  Company Number: US-NOVEN-11US001641

PATIENT
  Sex: Female

DRUGS (8)
  1. PROVIGIL [Concomitant]
     Indication: NARCOLEPSY
     Dosage: UNK, QD
     Route: 048
  2. FENTANYL [Suspect]
     Indication: SCOLIOSIS
  3. FENTANYL [Suspect]
     Indication: FIBROMYALGIA
  4. FENTANYL [Suspect]
     Indication: SPINAL COLUMN STENOSIS
     Dosage: 25 UG, UNK
     Route: 062
     Dates: start: 20080101
  5. MIRAPEX [Concomitant]
     Indication: ASTHMA
     Dosage: 1 TAB, TID
     Route: 048
     Dates: start: 19910101
  6. ^ASTHMA MEDICATION^ [Concomitant]
     Indication: ASTHMA
     Dosage: UNK, 1-4 TIMES PER DAY
     Dates: start: 19910101
  7. ADVAIR HFA [Concomitant]
     Indication: ASTHMA
     Dosage: UNK, BID
  8. VICODIN [Concomitant]
     Indication: TENDON INJURY
     Dosage: UNK, PRN
     Route: 048

REACTIONS (5)
  - PRURITUS [None]
  - DYSPHONIA [None]
  - HALLUCINATION [None]
  - EUPHORIC MOOD [None]
  - DRY MOUTH [None]
